FAERS Safety Report 6102101-9 (Version None)
Quarter: 2009Q1

REPORT INFORMATION
  Report Type: 
  Country: None (occurrence: None)
  Receive Date: 20090304
  Receipt Date: 20090219
  Transmission Date: 20090719
  Serious: Yes (Hospitalization)
  Sender: FDA-Public Use
  Company Number: US-PFIZER INC-2008155546

PATIENT
  Sex: Male
  Weight: 70.748 kg

DRUGS (1)
  1. MARAVIROC [Suspect]
     Indication: HIV INFECTION CDC GROUP I
     Dosage: 300 MG, 2X/DAY
     Route: 048
     Dates: start: 20060329

REACTIONS (1)
  - GASTROENTERITIS [None]
